FAERS Safety Report 8307774 (Version 2)
Quarter: 2014Q2

REPORT INFORMATION
  Report Type: Spontaneous
  Country: US (occurrence: US)
  Receive Date: 20111222
  Receipt Date: 20140617
  Transmission Date: 20141212
  Serious: Yes (Other)
  Sender: FDA-Public Use
  Company Number: US-PFIZER INC-2011307958

PATIENT
  Age: 80 Year
  Sex: Female
  Weight: 54.42 kg

DRUGS (2)
  1. XALATAN [Suspect]
     Indication: INTRAOCULAR PRESSURE TEST ABNORMAL
     Dosage: UNK, 1X/DAY
     Dates: start: 2008
  2. XALATAN [Suspect]
     Indication: GLAUCOMA

REACTIONS (3)
  - Hypertension [Not Recovered/Not Resolved]
  - Incorrect dose administered [Unknown]
  - Product dropper issue [Unknown]
